FAERS Safety Report 22137142 (Version 2)
Quarter: 2023Q1

REPORT INFORMATION
  Report Type: Spontaneous
  Country: JP (occurrence: JP)
  Receive Date: 20230324
  Receipt Date: 20230331
  Transmission Date: 20230417
  Serious: Yes (Other)
  Sender: FDA-Public Use
  Company Number: JP-Santen Ltd-2023-JPN-001595

PATIENT
  Age: 48 Year
  Sex: Male

DRUGS (1)
  1. OMIDENEPAG ISOPROPYL [Suspect]
     Active Substance: OMIDENEPAG ISOPROPYL
     Indication: Glaucoma
     Dosage: UNKNOWN
     Route: 047

REACTIONS (1)
  - Cataract operation [Unknown]
